FAERS Safety Report 8987617 (Version 1)
Quarter: 2012Q4

REPORT INFORMATION
  Report Type: 
  Country: US (occurrence: US)
  Receive Date: 20121227
  Receipt Date: 20121227
  Transmission Date: 20130627
  Serious: Yes (Other)
  Sender: FDA-Public Use
  Company Number: US-PFIZER INC-2012054171

PATIENT
  Sex: Male
  Weight: 2.81 kg

DRUGS (1)
  1. LO/OVRAL-28 [Suspect]
     Indication: BIRTH CONTROL
     Dosage: UNK
     Route: 064
     Dates: start: 201108, end: 20120228

REACTIONS (5)
  - Premature baby [Unknown]
  - Immature respiratory system [Unknown]
  - Dyspnoea [Unknown]
  - Product quality issue [Unknown]
  - Maternal exposure timing unspecified [Unknown]
